FAERS Safety Report 20227561 (Version 1)
Quarter: 2021Q4

REPORT INFORMATION
  Report Type: Spontaneous
  Country: FR (occurrence: FR)
  Receive Date: 20211224
  Receipt Date: 20211224
  Transmission Date: 20220304
  Serious: Yes (Congenital Anomaly)
  Sender: FDA-Public Use
  Company Number: FR-NOVARTISPH-NVSC2021FR292527

PATIENT
  Sex: Female

DRUGS (2)
  1. RIFAMPIN [Suspect]
     Active Substance: RIFAMPIN
     Indication: Foetal exposure during pregnancy
     Dosage: MATERNAL DOSE: 5 MG/KG/DAY
     Route: 064
  2. URSODIOL [Suspect]
     Active Substance: URSODIOL
     Indication: Foetal exposure during pregnancy
     Dosage: MATERNAL DOSE:15 MG/KG/DAY
     Route: 064

REACTIONS (2)
  - Alagille syndrome [Unknown]
  - Foetal exposure during pregnancy [Unknown]
